FAERS Safety Report 10835907 (Version 3)
Quarter: 2015Q1

REPORT INFORMATION
  Report Type: Report from Study
  Country: CA (occurrence: CA)
  Receive Date: 20150219
  Receipt Date: 20150311
  Transmission Date: 20150721
  Serious: Yes (Hospitalization, Other)
  Sender: FDA-Public Use
  Company Number: CA-ABBVIE-15K-028-1346901-00

PATIENT
  Sex: Female
  Weight: 47.7 kg

DRUGS (6)
  1. LEUCOVORIN [Concomitant]
     Active Substance: LEUCOVORIN
     Indication: ARTHRITIS
     Route: 048
     Dates: start: 20140605
  2. PREVACID [Concomitant]
     Active Substance: LANSOPRAZOLE
     Indication: OSTEITIS
     Route: 048
     Dates: start: 20140605
  3. HUMIRA [Suspect]
     Active Substance: ADALIMUMAB
     Indication: PRODUCT USED FOR UNKNOWN INDICATION
     Route: 058
     Dates: start: 20141007, end: 20150210
  4. VOLTAREN [Concomitant]
     Active Substance: DICLOFENAC SODIUM
     Indication: ARTHRITIS
     Dosage: 25 MG TO 75 MG
     Route: 048
     Dates: start: 20140916
  5. PREDNISONE. [Concomitant]
     Active Substance: PREDNISONE
     Indication: ARTHRITIS
     Route: 048
     Dates: start: 20150212
  6. METHOTREXATE [Concomitant]
     Active Substance: METHOTREXATE
     Indication: ARTHRITIS
     Route: 048
     Dates: start: 20140605

REACTIONS (9)
  - Skin burning sensation [Unknown]
  - Injection site erythema [Recovered/Resolved]
  - Injection site oedema [Recovered/Resolved]
  - Injection site warmth [Recovered/Resolved]
  - Pruritus [Unknown]
  - Injection site oedema [Recovered/Resolved]
  - Injection site erythema [Recovered/Resolved]
  - Cellulitis [Not Recovered/Not Resolved]
  - Injection site warmth [Recovered/Resolved]

NARRATIVE: CASE EVENT DATE: 201410
